FAERS Safety Report 20759782 (Version 1)
Quarter: 2022Q2

REPORT INFORMATION
  Report Type: Spontaneous
  Country: US (occurrence: US)
  Receive Date: 20220427
  Receipt Date: 20220427
  Transmission Date: 20220721
  Serious: No
  Sender: FDA-Public Use
  Company Number: US-JNJFOC-20220442900

PATIENT
  Age: 34 Year
  Sex: Female
  Weight: 64.922 kg

DRUGS (1)
  1. REMICADE [Suspect]
     Active Substance: INFLIXIMAB
     Indication: Hidradenitis
     Dosage: DOSES ON WEEK 0, WEEK 2, AND WEEK 4.
     Route: 042
     Dates: start: 20220407

REACTIONS (6)
  - Injection site reaction [Unknown]
  - Underdose [Unknown]
  - Poor venous access [Unknown]
  - Incorrect drug administration rate [Unknown]
  - Off label use [Unknown]
  - Product use in unapproved indication [Unknown]

NARRATIVE: CASE EVENT DATE: 20220407
